FAERS Safety Report 11866638 (Version 1)
Quarter: 2015Q4

REPORT INFORMATION
  Report Type: Spontaneous
  Country: US (occurrence: US)
  Receive Date: 20151224
  Receipt Date: 20151224
  Transmission Date: 20160305
  Serious: Yes (Hospitalization, Other)
  Sender: FDA-Public Use
  Company Number: US-SHIRE-US201516429

PATIENT
  Sex: Female
  Weight: 53.97 kg

DRUGS (1)
  1. GATTEX [Suspect]
     Active Substance: TEDUGLUTIDE\WATER
     Indication: SHORT-BOWEL SYNDROME
     Dosage: 0.3 ML, 1X/DAY:QD
     Route: 058
     Dates: start: 201410, end: 2015

REACTIONS (5)
  - Weight decreased [Unknown]
  - Disorientation [Unknown]
  - Aphasia [Unknown]
  - Hospitalisation [Unknown]
  - Laboratory test abnormal [Unknown]
